FAERS Safety Report 15346758 (Version 1)
Quarter: 2018Q3

REPORT INFORMATION
  Report Type: Spontaneous
  Country: US (occurrence: US)
  Receive Date: 20180904
  Receipt Date: 20180904
  Transmission Date: 20181010
  Serious: Yes (Other)
  Sender: FDA-Public Use
  Company Number: PHHY2018US085081

PATIENT
  Age: 6 Year
  Sex: Female

DRUGS (5)
  1. CYCLOPHOSPHAMIDE. [Suspect]
     Active Substance: CYCLOPHOSPHAMIDE
     Indication: BURKITT^S LYMPHOMA STAGE I
     Dosage: 250 MG/M2, Q12H (IN 6 DOSES, DAYS 1?3)
     Route: 042
  2. PREDNISONE. [Suspect]
     Active Substance: PREDNISONE
     Indication: BURKITT^S LYMPHOMA STAGE I
     Dosage: 60 MG/M2, Q12H (DAYS 1?5 FOLLOWED BY TAPER OVER 3 DAY )
     Route: 048
  3. VINBLASTINE [Suspect]
     Active Substance: VINBLASTINE
     Indication: BURKITT^S LYMPHOMA STAGE I
     Dosage: 6 MG/M2, UNK (DAY 6)
     Route: 042
  4. DOXORUBICIN [Suspect]
     Active Substance: DOXORUBICIN
     Indication: BURKITT^S LYMPHOMA STAGE I
     Dosage: 60 MG/M2, UNK (DAY 1 CYCLE 1)
     Route: 042
  5. VINCRISTINE [Suspect]
     Active Substance: VINCRISTINE
     Indication: BURKITT^S LYMPHOMA STAGE I
     Dosage: 2 UNK, UNK (DAY 1)
     Route: 042

REACTIONS (2)
  - Mucosal inflammation [Recovered/Resolved]
  - Neutropenia [Recovered/Resolved]
